FAERS Safety Report 22248562 (Version 1)
Quarter: 2023Q2

REPORT INFORMATION
  Report Type: Spontaneous
  Country: FR (occurrence: FR)
  Receive Date: 20230425
  Receipt Date: 20230425
  Transmission Date: 20230722
  Serious: Yes (Hospitalization)
  Sender: FDA-Public Use
  Company Number: FR-GILEAD-2023-0624927

PATIENT
  Sex: Female

DRUGS (1)
  1. TRODELVY [Suspect]
     Active Substance: SACITUZUMAB GOVITECAN-HZIY
     Indication: Product used for unknown indication
     Dosage: UNK
     Route: 065

REACTIONS (12)
  - Infection [Unknown]
  - White blood cell count decreased [Unknown]
  - Glassy eyes [Unknown]
  - Pyrexia [Unknown]
  - Diarrhoea [Unknown]
  - Abdominal pain upper [Unknown]
  - Fatigue [Unknown]
  - Fatigue [Unknown]
  - Asthenia [Unknown]
  - Asthenia [Unknown]
  - Alopecia [Recovering/Resolving]
  - Oncologic complication [Unknown]
